FAERS Safety Report 14474273 (Version 2)
Quarter: 2018Q1

REPORT INFORMATION
  Report Type: Spontaneous
  Country: PL (occurrence: PL)
  Receive Date: 20180201
  Receipt Date: 20180215
  Transmission Date: 20180509
  Serious: Yes (Other)
  Sender: FDA-Public Use
  Company Number: PL-OCTA-LIT01918PL

PATIENT
  Age: 66 Year
  Sex: Male

DRUGS (1)
  1. SANDOGLOBULIN [Suspect]
     Active Substance: HUMAN IMMUNOGLOBULIN G
     Indication: PRODUCT USED FOR UNKNOWN INDICATION
     Dosage: 2 G/KG
     Route: 042

REACTIONS (3)
  - Hypotension [Unknown]
  - Respiratory failure [Unknown]
  - Stress cardiomyopathy [Unknown]
